FAERS Safety Report 22520297 (Version 1)
Quarter: 2023Q2

REPORT INFORMATION
  Report Type: Report from Study
  Country: IT (occurrence: IT)
  Receive Date: 20230605
  Receipt Date: 20230605
  Transmission Date: 20230722
  Serious: No
  Sender: FDA-Public Use
  Company Number: None

PATIENT

DRUGS (7)
  1. SOTROVIMAB [Suspect]
     Active Substance: SOTROVIMAB
     Indication: COVID-19
     Dosage: 500 MG
     Route: 042
     Dates: start: 20230520, end: 20230520
  2. OLMESARTAN MEDOXOMIL [Concomitant]
     Active Substance: OLMESARTAN MEDOXOMIL
     Indication: Hypertensive heart disease
     Dosage: UNK
     Route: 065
  3. TACHIPIRINA [Concomitant]
     Active Substance: ACETAMINOPHEN
     Indication: Pyrexia
     Dosage: 1000 MG, AS NEEDED
     Route: 048
     Dates: start: 20230518, end: 20230520
  4. AZITHROMYCIN [Concomitant]
     Active Substance: AZITHROMYCIN
     Indication: Upper respiratory tract infection
     Dosage: 500 MG, QD
     Route: 048
     Dates: start: 20230518, end: 20230520
  5. IBUPROFEN [Concomitant]
     Active Substance: IBUPROFEN
     Indication: Pyrexia
     Dosage: 600 MG, TID
     Route: 048
     Dates: start: 20230518, end: 20230520
  6. AMBROXOL HYDROCHLORIDE [Concomitant]
     Active Substance: AMBROXOL HYDROCHLORIDE
     Indication: Upper respiratory tract congestion
     Dosage: 15 MG, BID
     Route: 055
     Dates: start: 20230518, end: 20230520
  7. BECLOMETHASONE DIPROPIONATE [Concomitant]
     Active Substance: BECLOMETHASONE DIPROPIONATE
     Indication: Upper respiratory tract congestion
     Dosage: 800 ?G, BID
     Route: 055
     Dates: start: 20230518, end: 20230520

REACTIONS (2)
  - Dysphagia [Recovered/Resolved]
  - Swelling [Recovered/Resolved]

NARRATIVE: CASE EVENT DATE: 20230520
